FAERS Safety Report 14536380 (Version 3)
Quarter: 2020Q3

REPORT INFORMATION
  Report Type: Report from Study
  Country: KR (occurrence: KR)
  Receive Date: 20180215
  Receipt Date: 20180323
  Transmission Date: 20201104
  Serious: Yes (Hospitalization)
  Sender: FDA-Public Use
  Company Number: KR-ASTRAZENECA-2018SE12598

PATIENT
  Age: 708 Month
  Sex: Male

DRUGS (109)
  1. PEMETREXED. [Suspect]
     Active Substance: PEMETREXED
     Indication: NON-SMALL CELL LUNG CANCER
     Dosage: 500 MG/M2
     Route: 042
     Dates: start: 20171109, end: 20171109
  2. PEMETREXED. [Suspect]
     Active Substance: PEMETREXED
     Indication: NON-SMALL CELL LUNG CANCER
     Dosage: 500 MG/M2
     Route: 042
     Dates: start: 20180110, end: 20180110
  3. MEDI4736 [Suspect]
     Active Substance: DURVALUMAB
     Indication: NON-SMALL CELL LUNG CANCER
     Route: 042
     Dates: start: 20180214, end: 20180214
  4. CODEINE [Concomitant]
     Active Substance: CODEINE
     Indication: PRODUCTIVE COUGH
     Route: 048
     Dates: start: 20170712, end: 20170815
  5. MACPERAN [Concomitant]
     Active Substance: METOCLOPRAMIDE HYDROCHLORIDE
     Indication: NAUSEA
     Dosage: 10.0MG ONCE/SINGLE ADMINISTRATION
     Route: 042
     Dates: start: 20170911, end: 20170911
  6. LANTUS [Concomitant]
     Active Substance: INSULIN GLARGINE
     Indication: HYPERGLYCAEMIA
     Route: 058
     Dates: start: 20171017, end: 20171017
  7. MIRABEGRON [Concomitant]
     Active Substance: MIRABEGRON
     Indication: POLLAKIURIA
     Route: 048
     Dates: start: 20180110
  8. FOIPAN [Concomitant]
     Active Substance: CAMOSTAT MESYLATE
     Indication: AMYLASE INCREASED
     Route: 048
     Dates: start: 20180101
  9. PEMETREXED. [Suspect]
     Active Substance: PEMETREXED
     Indication: NON-SMALL CELL LUNG CANCER
     Dosage: 500 MG/M2
     Route: 042
     Dates: start: 20170908, end: 20170908
  10. PEMETREXED. [Suspect]
     Active Substance: PEMETREXED
     Indication: NON-SMALL CELL LUNG CANCER
     Dosage: 500 MG/M2
     Route: 042
     Dates: start: 20171204, end: 20171204
  11. MEDI4736 [Suspect]
     Active Substance: DURVALUMAB
     Indication: NON-SMALL CELL LUNG CANCER
     Route: 042
     Dates: start: 20170908, end: 20170908
  12. CARBOPLATIN. [Suspect]
     Active Substance: CARBOPLATIN
     Indication: NON-SMALL CELL LUNG CANCER
     Dosage: 5.0 AUC
     Route: 042
     Dates: start: 20171013, end: 20171013
  13. TYLENOL?ER [Concomitant]
     Indication: PYREXIA
     Dosage: 1300.0MG AS REQUIRED
     Route: 048
     Dates: start: 20170823
  14. TYLENOL?ER [Concomitant]
     Indication: PROPHYLAXIS
     Dosage: 1300.0MG ONCE/SINGLE ADMINISTRATION
     Route: 048
     Dates: start: 20171017, end: 20171017
  15. CODEINE [Concomitant]
     Active Substance: CODEINE
     Indication: PROPHYLAXIS
     Route: 048
     Dates: start: 20170816
  16. BISOLVON [Concomitant]
     Active Substance: BROMHEXINE HYDROCHLORIDE
     Indication: PROPHYLAXIS
     Route: 048
     Dates: start: 20171019
  17. TANTUM [Concomitant]
     Active Substance: BENZYDAMINE HYDROCHLORIDE
     Indication: PROPHYLAXIS
     Dosage: 1 BTL PRN
     Route: 002
     Dates: start: 20171019
  18. HUMALOG [Concomitant]
     Active Substance: INSULIN LISPRO
     Indication: HYPERGLYCAEMIA
     Dosage: 8.0IU AS REQUIRED
     Route: 058
     Dates: start: 20171003, end: 20171006
  19. HUMALOG [Concomitant]
     Active Substance: INSULIN LISPRO
     Indication: HYPERGLYCAEMIA
     Dosage: 8.0IU AS REQUIRED
     Route: 058
     Dates: start: 20171012, end: 20171012
  20. HUMALOG [Concomitant]
     Active Substance: INSULIN LISPRO
     Indication: HYPERGLYCAEMIA
     Dosage: 16.0IU AS REQUIRED
     Route: 058
     Dates: start: 20171014, end: 20171018
  21. HUMALOG [Concomitant]
     Active Substance: INSULIN LISPRO
     Indication: TYPE 1 DIABETES MELLITUS
     Dosage: 14.0IU AS REQUIRED
     Route: 058
     Dates: start: 20171019, end: 20171020
  22. LANTUS [Concomitant]
     Active Substance: INSULIN GLARGINE
     Indication: TYPE 1 DIABETES MELLITUS
     Route: 058
     Dates: start: 20171013, end: 20171013
  23. LANTUS [Concomitant]
     Active Substance: INSULIN GLARGINE
     Indication: TYPE 1 DIABETES MELLITUS
     Dosage: 22 [IU] REGULTED FOLLOWING GLUCOSE LEVEL, AS REQUIRED AS REQUIRED
     Route: 058
     Dates: start: 20171021
  24. FOIPAN [Concomitant]
     Active Substance: CAMOSTAT MESYLATE
     Indication: PROPHYLAXIS
     Route: 048
     Dates: start: 20171106, end: 20171231
  25. MEDI4736 [Suspect]
     Active Substance: DURVALUMAB
     Indication: NON-SMALL CELL LUNG CANCER
     Route: 042
     Dates: start: 20170726, end: 20170726
  26. TREMELIMUMAB. [Suspect]
     Active Substance: TREMELIMUMAB
     Indication: NON-SMALL CELL LUNG CANCER
     Route: 042
     Dates: start: 20171204, end: 20171204
  27. HARNAL [Concomitant]
     Active Substance: TAMSULOSIN HYDROCHLORIDE
     Indication: POLLAKIURIA
     Route: 048
     Dates: start: 20170823
  28. TYLENOL?ER [Concomitant]
     Indication: PROPHYLAXIS
     Dosage: 1300.0MG ONCE/SINGLE ADMINISTRATION
     Route: 048
     Dates: start: 20171014, end: 20171014
  29. VOGLIBOSE [Concomitant]
     Active Substance: VOGLIBOSE
     Indication: HYPERGLYCAEMIA
     Route: 048
     Dates: start: 20171018
  30. DICAMAX D [Concomitant]
     Indication: PROPHYLAXIS
     Route: 048
     Dates: start: 20171018
  31. HUMALOG [Concomitant]
     Active Substance: INSULIN LISPRO
     Indication: TYPE 1 DIABETES MELLITUS
     Dosage: 6.0IU AS REQUIRED
     Route: 058
     Dates: start: 20171003, end: 20171006
  32. HUMALOG [Concomitant]
     Active Substance: INSULIN LISPRO
     Indication: TYPE 1 DIABETES MELLITUS
     Dosage: 5.0IU AS REQUIRED
     Route: 058
     Dates: start: 20171007, end: 20171012
  33. HUMALOG [Concomitant]
     Active Substance: INSULIN LISPRO
     Indication: TYPE 1 DIABETES MELLITUS
     Dosage: 12.0IU AS REQUIRED
     Route: 058
     Dates: start: 20171013, end: 20171018
  34. HUMALOG [Concomitant]
     Active Substance: INSULIN LISPRO
     Indication: HYPERGLYCAEMIA
     Dosage: 10.0IU AS REQUIRED
     Route: 058
     Dates: start: 20171014, end: 20171018
  35. HUMALOG [Concomitant]
     Active Substance: INSULIN LISPRO
     Indication: HYPERGLYCAEMIA
     Dosage: 14.0IU AS REQUIRED
     Route: 058
     Dates: start: 20171019, end: 20171020
  36. HUMALOG [Concomitant]
     Active Substance: INSULIN LISPRO
     Indication: TYPE 1 DIABETES MELLITUS
     Dosage: 10 [IU] REGULATED FOLLOWING GLUCOSE LEVEL, AS REQUIRED AS REQUIRED
     Route: 058
     Dates: start: 20171021
  37. HUMALOG [Concomitant]
     Active Substance: INSULIN LISPRO
     Indication: HYPERGLYCAEMIA
     Dosage: 10 [IU] REGULATED FOLLOWING GLUCOSE LEVEL, AS REQUIRED AS REQUIRED
     Route: 058
     Dates: start: 20171021
  38. LANTUS [Concomitant]
     Active Substance: INSULIN GLARGINE
     Indication: HYPERGLYCAEMIA
     Route: 058
     Dates: start: 20171015, end: 20171015
  39. LANTUS [Concomitant]
     Active Substance: INSULIN GLARGINE
     Indication: TYPE 1 DIABETES MELLITUS
     Route: 058
     Dates: start: 20171017, end: 20171017
  40. TAGAMET [Concomitant]
     Active Substance: CIMETIDINE
     Indication: PROPHYLAXIS
     Route: 048
     Dates: start: 20180122
  41. CAROL?F [Concomitant]
     Indication: HEADACHE
     Dosage: 1.0DF AS REQUIRED
     Route: 048
     Dates: start: 20180122
  42. PEMETREXED. [Suspect]
     Active Substance: PEMETREXED
     Indication: NON-SMALL CELL LUNG CANCER
     Dosage: 500 MG/M2
     Route: 042
     Dates: start: 20170816, end: 20170816
  43. CARBOPLATIN. [Suspect]
     Active Substance: CARBOPLATIN
     Indication: NON-SMALL CELL LUNG CANCER
     Dosage: 5.0 AUC
     Route: 042
     Dates: start: 20170816, end: 20170816
  44. TYLENOL?ER [Concomitant]
     Indication: PROPHYLAXIS
     Dosage: 1300.0MG ONCE/SINGLE ADMINISTRATION
     Route: 048
     Dates: start: 20171014, end: 20171014
  45. TYLENOL?ER [Concomitant]
     Indication: PROPHYLAXIS
     Dosage: 1300.0MG ONCE/SINGLE ADMINISTRATION
     Route: 048
     Dates: start: 20171017, end: 20171017
  46. CODEINE [Concomitant]
     Active Substance: CODEINE
     Indication: PROPHYLAXIS
     Route: 048
     Dates: start: 20170712, end: 20170815
  47. ERDOS [Concomitant]
     Active Substance: ERDOSTEINE
     Indication: PROPHYLAXIS
     Route: 048
     Dates: start: 20171012
  48. HUMALOG [Concomitant]
     Active Substance: INSULIN LISPRO
     Indication: HYPERGLYCAEMIA
     Dosage: 6.0IU AS REQUIRED
     Route: 058
     Dates: start: 20171013, end: 20171013
  49. HUMALOG [Concomitant]
     Active Substance: INSULIN LISPRO
     Indication: HYPERGLYCAEMIA
     Dosage: 14.0IU AS REQUIRED
     Route: 058
     Dates: start: 20171014, end: 20171014
  50. LANTUS [Concomitant]
     Active Substance: INSULIN GLARGINE
     Indication: TYPE 1 DIABETES MELLITUS
     Route: 058
     Dates: start: 20171003, end: 20171012
  51. LANTUS [Concomitant]
     Active Substance: INSULIN GLARGINE
     Indication: TYPE 1 DIABETES MELLITUS
     Dosage: 28.0IU AS REQUIRED
     Route: 058
     Dates: start: 20171018, end: 20171018
  52. ULTRACET [Concomitant]
     Active Substance: ACETAMINOPHEN\TRAMADOL HYDROCHLORIDE
     Indication: PAIN IN EXTREMITY
     Dosage: 1.0DF AS REQUIRED
     Route: 048
     Dates: start: 20171106
  53. TAGAMET [Concomitant]
     Active Substance: CIMETIDINE
     Indication: PROPHYLAXIS
     Route: 048
     Dates: start: 20170911, end: 20170914
  54. MEDI4736 [Suspect]
     Active Substance: DURVALUMAB
     Indication: NON-SMALL CELL LUNG CANCER
     Route: 042
     Dates: start: 20180313
  55. MEDI4736 [Suspect]
     Active Substance: DURVALUMAB
     Indication: NON-SMALL CELL LUNG CANCER
     Route: 042
     Dates: start: 20171204, end: 20171204
  56. MACPERAN [Concomitant]
     Active Substance: METOCLOPRAMIDE HYDROCHLORIDE
     Indication: NAUSEA
     Dosage: 10.0MG ONCE/SINGLE ADMINISTRATION
     Route: 042
     Dates: start: 20171017, end: 20171017
  57. HUMALOG [Concomitant]
     Active Substance: INSULIN LISPRO
     Indication: HYPERGLYCAEMIA
     Dosage: 6.0IU AS REQUIRED
     Route: 058
     Dates: start: 20171003, end: 20171006
  58. HUMALOG [Concomitant]
     Active Substance: INSULIN LISPRO
     Indication: TYPE 1 DIABETES MELLITUS
     Dosage: 14.0IU AS REQUIRED
     Route: 058
     Dates: start: 20171014, end: 20171014
  59. HUMALOG [Concomitant]
     Active Substance: INSULIN LISPRO
     Indication: TYPE 1 DIABETES MELLITUS
     Dosage: 10.0IU AS REQUIRED
     Route: 058
     Dates: start: 20171014, end: 20171018
  60. HUMALOG [Concomitant]
     Active Substance: INSULIN LISPRO
     Indication: TYPE 1 DIABETES MELLITUS
     Dosage: 16.0IU AS REQUIRED
     Route: 058
     Dates: start: 20171014, end: 20171018
  61. HUMALOG [Concomitant]
     Active Substance: INSULIN LISPRO
     Indication: HYPERGLYCAEMIA
     Dosage: 20.0IU AS REQUIRED
     Route: 058
     Dates: start: 20171016, end: 20171016
  62. LANTUS [Concomitant]
     Active Substance: INSULIN GLARGINE
     Indication: TYPE 1 DIABETES MELLITUS
     Route: 058
     Dates: start: 20171014, end: 20171014
  63. LANTUS [Concomitant]
     Active Substance: INSULIN GLARGINE
     Indication: HYPERGLYCAEMIA
     Route: 058
     Dates: start: 20171014, end: 20171014
  64. LANTUS [Concomitant]
     Active Substance: INSULIN GLARGINE
     Indication: HYPERGLYCAEMIA
     Dosage: 28.0IU AS REQUIRED
     Route: 058
     Dates: start: 20171018, end: 20171018
  65. TAGAMET [Concomitant]
     Active Substance: CIMETIDINE
     Indication: GASTRITIS PROPHYLAXIS
     Route: 048
     Dates: start: 20180122
  66. PEMETREXED. [Suspect]
     Active Substance: PEMETREXED
     Indication: NON-SMALL CELL LUNG CANCER
     Dosage: 500 MG/M2
     Route: 042
     Dates: start: 20170726, end: 20170726
  67. PEMETREXED. [Suspect]
     Active Substance: PEMETREXED
     Indication: NON-SMALL CELL LUNG CANCER
     Dosage: 500 MG/M2
     Route: 042
     Dates: start: 20171013, end: 20171013
  68. PEMETREXED. [Suspect]
     Active Substance: PEMETREXED
     Indication: NON-SMALL CELL LUNG CANCER
     Dosage: 500 MG/M2
     Route: 042
     Dates: start: 20180313
  69. TREMELIMUMAB. [Suspect]
     Active Substance: TREMELIMUMAB
     Indication: NON-SMALL CELL LUNG CANCER
     Route: 042
     Dates: start: 20170726, end: 20170726
  70. CARBOPLATIN. [Suspect]
     Active Substance: CARBOPLATIN
     Indication: NON-SMALL CELL LUNG CANCER
     Dosage: 5.0 AUC
     Route: 042
     Dates: start: 20170908, end: 20170908
  71. TYLENOL?ER [Concomitant]
     Indication: PROPHYLAXIS
     Dosage: 1300.0MG AS REQUIRED
     Route: 048
     Dates: start: 20170823
  72. HUMALOG [Concomitant]
     Active Substance: INSULIN LISPRO
     Indication: HYPERGLYCAEMIA
     Dosage: 5.0IU AS REQUIRED
     Route: 058
     Dates: start: 20171007, end: 20171012
  73. HUMALOG [Concomitant]
     Active Substance: INSULIN LISPRO
     Indication: TYPE 1 DIABETES MELLITUS
     Dosage: 8.0IU AS REQUIRED
     Route: 058
     Dates: start: 20171012, end: 20171012
  74. HUMALOG [Concomitant]
     Active Substance: INSULIN LISPRO
     Indication: TYPE 1 DIABETES MELLITUS
     Dosage: 18.0IU AS REQUIRED
     Route: 058
     Dates: start: 20171014, end: 20171017
  75. LANTUS [Concomitant]
     Active Substance: INSULIN GLARGINE
     Indication: HYPERGLYCAEMIA
     Route: 058
     Dates: start: 20171003, end: 20171012
  76. FOIPAN [Concomitant]
     Active Substance: CAMOSTAT MESYLATE
     Indication: PROPHYLAXIS
     Route: 048
     Dates: start: 20180101
  77. MEDI4736 [Suspect]
     Active Substance: DURVALUMAB
     Indication: NON-SMALL CELL LUNG CANCER
     Route: 042
     Dates: start: 20171013, end: 20171013
  78. MEDI4736 [Suspect]
     Active Substance: DURVALUMAB
     Indication: NON-SMALL CELL LUNG CANCER
     Route: 042
     Dates: start: 20171109, end: 20171109
  79. CARBOPLATIN. [Suspect]
     Active Substance: CARBOPLATIN
     Indication: NON-SMALL CELL LUNG CANCER
     Dosage: 5.0 AUC
     Route: 042
     Dates: start: 20170726, end: 20170726
  80. TYLENOL?ER [Concomitant]
     Indication: PROPHYLAXIS
     Dosage: 1300.0MG AS REQUIRED
     Route: 048
     Dates: start: 20170823
  81. TYLENOL?ER [Concomitant]
     Indication: PYREXIA
     Dosage: 1300.0MG ONCE/SINGLE ADMINISTRATION
     Route: 048
     Dates: start: 20171014, end: 20171014
  82. TYLENOL?ER [Concomitant]
     Indication: PYREXIA
     Dosage: 1300.0MG ONCE/SINGLE ADMINISTRATION
     Route: 048
     Dates: start: 20171017, end: 20171017
  83. HUMALOG [Concomitant]
     Active Substance: INSULIN LISPRO
     Indication: TYPE 1 DIABETES MELLITUS
     Dosage: 6.0IU AS REQUIRED
     Route: 058
     Dates: start: 20171013, end: 20171013
  84. HUMALOG [Concomitant]
     Active Substance: INSULIN LISPRO
     Indication: HYPERGLYCAEMIA
     Dosage: 18.0IU AS REQUIRED
     Route: 058
     Dates: start: 20171014, end: 20171017
  85. LANTUS [Concomitant]
     Active Substance: INSULIN GLARGINE
     Indication: HYPERGLYCAEMIA
     Route: 058
     Dates: start: 20171013, end: 20171013
  86. PERIOCLINE [Concomitant]
     Indication: GINGIVAL PAIN
     Dosage: 1.0ML AS REQUIRED
     Route: 004
     Dates: start: 20171205
  87. MINIRIN [Concomitant]
     Active Substance: DESMOPRESSIN ACETATE
     Indication: POLLAKIURIA
     Route: 048
     Dates: start: 20180110
  88. METHIMAZOLE. [Concomitant]
     Active Substance: METHIMAZOLE
     Indication: HYPERTHYROIDISM
     Route: 048
     Dates: start: 20171018, end: 20180109
  89. METHIMAZOLE. [Concomitant]
     Active Substance: METHIMAZOLE
     Indication: HYPERTHYROIDISM
     Route: 048
     Dates: start: 20180110
  90. ONSERAN [Concomitant]
     Indication: NAUSEA
     Dosage: 8.0MG AS REQUIRED
     Route: 048
     Dates: start: 20180122
  91. NASEA [Concomitant]
     Active Substance: RAMOSETRON HYDROCHLORIDE
     Indication: NAUSEA
     Dosage: 0.3MG ONCE/SINGLE ADMINISTRATION
     Route: 042
     Dates: start: 20180122, end: 20180122
  92. GELMA [Concomitant]
     Indication: PROPHYLAXIS
     Route: 048
     Dates: start: 20180122
  93. FOIPAN [Concomitant]
     Active Substance: CAMOSTAT MESYLATE
     Indication: AMYLASE INCREASED
     Route: 048
     Dates: start: 20171106, end: 20171231
  94. PEMETREXED. [Suspect]
     Active Substance: PEMETREXED
     Indication: NON-SMALL CELL LUNG CANCER
     Dosage: 500 MG/M2
     Route: 042
     Dates: start: 20180214, end: 20180214
  95. MEDI4736 [Suspect]
     Active Substance: DURVALUMAB
     Indication: NON-SMALL CELL LUNG CANCER
     Route: 042
     Dates: start: 20180110, end: 20180110
  96. MEDI4736 [Suspect]
     Active Substance: DURVALUMAB
     Indication: NON-SMALL CELL LUNG CANCER
     Route: 042
     Dates: start: 20170816, end: 20170816
  97. TREMELIMUMAB. [Suspect]
     Active Substance: TREMELIMUMAB
     Indication: NON-SMALL CELL LUNG CANCER
     Route: 042
     Dates: start: 20170816, end: 20170816
  98. TREMELIMUMAB. [Suspect]
     Active Substance: TREMELIMUMAB
     Indication: NON-SMALL CELL LUNG CANCER
     Route: 042
     Dates: start: 20170908, end: 20170908
  99. TREMELIMUMAB. [Suspect]
     Active Substance: TREMELIMUMAB
     Indication: NON-SMALL CELL LUNG CANCER
     Route: 042
     Dates: start: 20171013, end: 20171013
  100. ACTINAMIDE [Concomitant]
     Indication: PREMEDICATION
     Dosage: 1 MG, ONCE EVERY 9 WEEK
     Route: 030
     Dates: start: 20170721
  101. CODEINE [Concomitant]
     Active Substance: CODEINE
     Indication: PRODUCTIVE COUGH
     Route: 048
     Dates: start: 20170816
  102. MACPERAN [Concomitant]
     Active Substance: METOCLOPRAMIDE HYDROCHLORIDE
     Indication: NAUSEA
     Route: 048
     Dates: start: 20170911
  103. HUMALOG [Concomitant]
     Active Substance: INSULIN LISPRO
     Indication: TYPE 1 DIABETES MELLITUS
     Dosage: 8.0IU AS REQUIRED
     Route: 058
     Dates: start: 20171003, end: 20171006
  104. HUMALOG [Concomitant]
     Active Substance: INSULIN LISPRO
     Indication: HYPERGLYCAEMIA
     Dosage: 12.0IU AS REQUIRED
     Route: 058
     Dates: start: 20171013, end: 20171018
  105. HUMALOG [Concomitant]
     Active Substance: INSULIN LISPRO
     Indication: TYPE 1 DIABETES MELLITUS
     Dosage: 20.0IU AS REQUIRED
     Route: 058
     Dates: start: 20171016, end: 20171016
  106. LANTUS [Concomitant]
     Active Substance: INSULIN GLARGINE
     Indication: TYPE 1 DIABETES MELLITUS
     Route: 058
     Dates: start: 20171015, end: 20171015
  107. LANTUS [Concomitant]
     Active Substance: INSULIN GLARGINE
     Indication: HYPERGLYCAEMIA
     Dosage: 22 [IU] REGULTED FOLLOWING GLUCOSE LEVEL, AS REQUIRED AS REQUIRED
     Route: 058
     Dates: start: 20171021
  108. LACTICARE HC [Concomitant]
     Indication: RASH PUSTULAR
     Dosage: 1 APPLICATION, AS REQUIRED
     Route: 003
     Dates: start: 20171109
  109. TAGAMET [Concomitant]
     Active Substance: CIMETIDINE
     Indication: GASTRITIS PROPHYLAXIS
     Route: 048
     Dates: start: 20170911, end: 20170914

REACTIONS (3)
  - Adrenal insufficiency [Recovering/Resolving]
  - Pneumonia [Recovered/Resolved]
  - Diabetes insipidus [Recovering/Resolving]

NARRATIVE: CASE EVENT DATE: 20180130
